FAERS Safety Report 9603844 (Version 1)
Quarter: 2013Q4

REPORT INFORMATION
  Report Type: Spontaneous
  Country: US (occurrence: US)
  Receive Date: 20131008
  Receipt Date: 20131008
  Transmission Date: 20140711
  Serious: No
  Sender: FDA-Public Use
  Company Number: US-009507513-1310USA002531

PATIENT
  Age: 59 Year
  Sex: Male

DRUGS (1)
  1. NASONEX [Suspect]
     Indication: HYPERSENSITIVITY
     Dosage: 1 DF, QD; ONE SPRAY IN EACH NOSTRIL.
     Route: 045
     Dates: start: 2012

REACTIONS (3)
  - Nasal dryness [Not Recovered/Not Resolved]
  - Drug dose omission [Unknown]
  - Product quality issue [Unknown]
